FAERS Safety Report 7880915-2 (Version None)
Quarter: 2011Q4

REPORT INFORMATION
  Report Type: 
  Country: None (occurrence: None)
  Receive Date: 20111101
  Receipt Date: 20111017
  Transmission Date: 20120403
  Serious: Yes (Hospitalization, Other)
  Sender: FDA-Public Use
  Company Number: ES-WATSON-2011-17545

PATIENT

DRUGS (1)
  1. IBUPROFEN [Suspect]
     Indication: ANTIINFLAMMATORY THERAPY

REACTIONS (1)
  - MENINGITIS ASEPTIC [None]
